FAERS Safety Report 10102033 (Version 2)
Quarter: 2014Q2

REPORT INFORMATION
  Report Type: Report from Study
  Country: US (occurrence: US)
  Receive Date: 20140424
  Receipt Date: 20140616
  Transmission Date: 20141212
  Serious: Yes (Hospitalization)
  Sender: FDA-Public Use
  Company Number: US-SA-2014SA049415

PATIENT
  Age: 67 Year
  Sex: Female

DRUGS (2)
  1. LANTUS SOLOSTAR [Suspect]
     Indication: DIABETES MELLITUS
     Dosage: DOSE:83 UNIT(S)
     Route: 065
  2. SOLOSTAR [Concomitant]
     Indication: DEVICE THERAPY

REACTIONS (6)
  - Hypertension [Not Recovered/Not Resolved]
  - Bladder disorder [Not Recovered/Not Resolved]
  - Hysterectomy [Unknown]
  - Urinary tract infection [Not Recovered/Not Resolved]
  - Incision site infection [Not Recovered/Not Resolved]
  - Blood glucose increased [Not Recovered/Not Resolved]
